FAERS Safety Report 12423101 (Version 2)
Quarter: 2016Q2

REPORT INFORMATION
  Report Type: Spontaneous
  Country: US (occurrence: US)
  Receive Date: 20160601
  Receipt Date: 20160615
  Transmission Date: 20160815
  Serious: No
  Sender: FDA-Public Use
  Company Number: US-PFIZER INC-2016279674

PATIENT
  Sex: Female

DRUGS (2)
  1. EFFEXOR XR [Suspect]
     Active Substance: VENLAFAXINE HYDROCHLORIDE
     Indication: MIGRAINE
     Dosage: 37.5 MG, UNK
  2. EFFEXOR XR [Suspect]
     Active Substance: VENLAFAXINE HYDROCHLORIDE
     Dosage: 25 MG, UNK (FOR A MONTH/TOOK IT EVERY OTHER DAY AND THEN TOOK IT EVERY THIRD DAY)

REACTIONS (4)
  - Product use issue [Unknown]
  - Intentional product use issue [Unknown]
  - Insomnia [Unknown]
  - Anxiety [Unknown]
